FAERS Safety Report 5201556-1 (Version None)
Quarter: 2007Q1

REPORT INFORMATION
  Report Type: 
  Country: None (occurrence: None)
  Receive Date: 20070108
  Receipt Date: 20061227
  Transmission Date: 20070707
  Serious: Yes (Death)
  Sender: FDA-Public Use
  Company Number: LV-PFIZER INC-2006155966

PATIENT
  Sex: Male

DRUGS (11)
  1. SUTENT [Suspect]
     Indication: METASTATIC RENAL CELL CARCINOMA
     Route: 048
     Dates: start: 20061102, end: 20061201
  2. OTHER RESPIRATORY SYSTEM PRODUCTS [Concomitant]
     Route: 055
  3. DIHYDROCODEINE BITARTRATE INJ [Concomitant]
     Route: 042
  4. SIBAZON [Concomitant]
     Route: 030
  5. PREDNISOLONE [Concomitant]
     Route: 042
  6. MEDROL [Concomitant]
     Route: 048
  7. ALL OTHER THERAPEUTIC PRODUCTS [Concomitant]
     Route: 048
  8. DIACARB [Concomitant]
     Route: 048
  9. OMEPRAZOLE [Concomitant]
     Route: 042
  10. GELOFUSINE [Concomitant]
     Route: 042
  11. GLUCOSE [Concomitant]
     Route: 042

REACTIONS (10)
  - ASTHENIA [None]
  - CARDIOPULMONARY FAILURE [None]
  - DISEASE PROGRESSION [None]
  - DYSPNOEA [None]
  - METASTASES TO CENTRAL NERVOUS SYSTEM [None]
  - METASTASES TO LUNG [None]
  - METASTASES TO LYMPH NODES [None]
  - MOVEMENT DISORDER [None]
  - PLEURISY [None]
  - POISONING [None]
